FAERS Safety Report 7217242-2 (Version None)
Quarter: 2011Q1

REPORT INFORMATION
  Report Type: 
  Country: None (occurrence: None)
  Receive Date: 20110110
  Receipt Date: 20101229
  Transmission Date: 20110831
  Serious: Yes (Other)
  Sender: FDA-Public Use
  Company Number: US-SANOFI-AVENTIS-2010SA078542

PATIENT
  Age: 78 Year
  Sex: Female
  Weight: 70 kg

DRUGS (7)
  1. ZOLOFT [Concomitant]
  2. ATACAND HCT [Concomitant]
  3. COUMADIN [Concomitant]
  4. AMITRIPTYLINE [Concomitant]
  5. LOVASTATIN [Concomitant]
  6. MULTAQ [Suspect]
     Indication: ATRIAL FIBRILLATION
     Route: 048
     Dates: start: 20101001, end: 20101201
  7. ATENOLOL [Concomitant]

REACTIONS (2)
  - ATRIAL FIBRILLATION [None]
  - DYSURIA [None]
